FAERS Safety Report 8956764 (Version 1)
Quarter: 2012Q4

REPORT INFORMATION
  Report Type: 
  Country: US (occurrence: US)
  Receive Date: 20121210
  Receipt Date: 20121210
  Transmission Date: 20130627
  Serious: Yes (Other)
  Sender: FDA-Public Use
  Company Number: CHPA2012US024601

PATIENT
  Age: 75 Year
  Sex: Female

DRUGS (3)
  1. EXCEDRIN EXTRA STRENGTH [Suspect]
     Indication: HEADACHE
     Dosage: 2 DF, PRN
     Route: 048
  2. EXCEDRIN MIGRAINE [Suspect]
     Indication: HEADACHE
     Dosage: 2 DF, PRN
     Route: 048
  3. EXCEDRIN PM [Suspect]
     Indication: INSOMNIA
     Dosage: 2 DF, PRN
     Route: 048

REACTIONS (2)
  - Aneurysm [Recovered/Resolved]
  - Mass [Not Recovered/Not Resolved]
